FAERS Safety Report 8985688 (Version 1)
Quarter: 2012Q4

REPORT INFORMATION
  Report Type: 
  Country: FR (occurrence: FR)
  Receive Date: 20121226
  Receipt Date: 20121226
  Transmission Date: 20130627
  Serious: Yes (Hospitalization)
  Sender: FDA-Public Use
  Company Number: FR-JNJFOC-20121209905

PATIENT
  Age: 37 Year
  Sex: Male

DRUGS (9)
  1. INFLIXIMAB, RECOMBINANT [Suspect]
     Indication: ANKYLOSING SPONDYLITIS
     Route: 042
  2. INFLIXIMAB, RECOMBINANT [Suspect]
     Indication: ANKYLOSING SPONDYLITIS
     Dosage: cycle 2 dose 450mg/250ml at 80ml/hour infusion was resumed at 40ml/hour
     Route: 042
     Dates: start: 20121016
  3. SKENAN [Concomitant]
     Route: 065
  4. ACTISKENAN [Concomitant]
     Dosage: 10 to 40mg daily
     Route: 065
  5. BI-PROFENID [Concomitant]
     Route: 065
  6. EUPANTOL [Concomitant]
     Route: 065
  7. DOLIPRANE [Concomitant]
     Route: 065
  8. MYOLASTAN [Concomitant]
     Route: 065
  9. MOVICOL [Concomitant]
     Route: 065

REACTIONS (5)
  - Infusion related reaction [Recovered/Resolved]
  - Hypotension [Recovered/Resolved]
  - Malaise [Recovered/Resolved]
  - Chills [Recovered/Resolved]
  - Pallor [Recovered/Resolved]
